FAERS Safety Report 9405108 (Version 2)
Quarter: 2014Q1

REPORT INFORMATION
  Report Type: Spontaneous
  Country: US (occurrence: US)
  Receive Date: 20130717
  Receipt Date: 20140210
  Transmission Date: 20141002
  Serious: No
  Sender: FDA-Public Use
  Company Number: US-BAYER-2013-086106

PATIENT
  Age: 56 Year
  Sex: Female
  Weight: 52 kg

DRUGS (2)
  1. CLIMARA [Suspect]
     Indication: HYSTERECTOMY
     Dosage: UNK
  2. ESTRADIOL HEMIHYDRATE [Suspect]
     Indication: HYSTERECTOMY
     Dosage: 0.075 MG, UNK
     Route: 062
     Dates: start: 2013

REACTIONS (11)
  - Application site irritation [Recovered/Resolved]
  - Application site erythema [Recovered/Resolved]
  - Application site pruritus [Recovered/Resolved]
  - Application site irritation [Not Recovered/Not Resolved]
  - Application site erythema [Not Recovered/Not Resolved]
  - Application site pruritus [Not Recovered/Not Resolved]
  - Product adhesion issue [None]
  - Product adhesion issue [None]
  - Application site burn [None]
  - Application site erythema [Not Recovered/Not Resolved]
  - Application site pruritus [Not Recovered/Not Resolved]
